FAERS Safety Report 17828759 (Version 2)
Quarter: 2020Q4

REPORT INFORMATION
  Report Type: Spontaneous
  Country: US (occurrence: US)
  Receive Date: 20200527
  Receipt Date: 20201218
  Transmission Date: 20210113
  Serious: Yes (Other)
  Sender: FDA-Public Use
  Company Number: US-TEVA-2020-US-1240002

PATIENT
  Age: 75 Year
  Sex: Female

DRUGS (1)
  1. AJOVY [Suspect]
     Active Substance: FREMANEZUMAB-VFRM
     Indication: MIGRAINE
     Dosage: 225/1.5 MG/ML
     Route: 065

REACTIONS (9)
  - Chest pain [Recovered/Resolved]
  - Atherosclerotic plaque rupture [Recovered/Resolved]
  - Abdominal pain [Recovered/Resolved]
  - Splenic infarction [Recovered/Resolved]
  - Splenic artery aneurysm [Recovered/Resolved]
  - Thrombosis mesenteric vessel [Recovered/Resolved]
  - Aortic stenosis [Recovered/Resolved]
  - Arthralgia [Recovered/Resolved]
  - Arteriosclerosis [Recovered/Resolved]

NARRATIVE: CASE EVENT DATE: 202004
